FAERS Safety Report 21480565 (Version 1)
Quarter: 2022Q4

REPORT INFORMATION
  Report Type: Spontaneous
  Country: US (occurrence: None)
  Receive Date: 20221019
  Receipt Date: 20221019
  Transmission Date: 20230113
  Serious: Yes (Other)
  Sender: FDA-Public Use
  Company Number: None

PATIENT
  Age: 45 Year
  Sex: Male
  Weight: 89.1 kg

DRUGS (1)
  1. FLONASE [Suspect]
     Active Substance: FLUTICASONE PROPIONATE
     Dosage: FREQUENCY : DAILY;?
     Route: 055
     Dates: start: 20220406, end: 20220624

REACTIONS (2)
  - Anxiety [None]
  - Anxiety [None]

NARRATIVE: CASE EVENT DATE: 20220625
